FAERS Safety Report 4667273-1 (Version None)
Quarter: 2005Q2

REPORT INFORMATION
  Report Type: 
  Country: None (occurrence: None)
  Receive Date: 20050520
  Receipt Date: 20040831
  Transmission Date: 20051028
  Serious: Yes (Other)
  Sender: FDA-Public Use
  Company Number: PHEH2004US09379

PATIENT
  Age: 45 Year
  Sex: Female

DRUGS (2)
  1. ZOMETA [Suspect]
     Indication: BREAST CANCER METASTATIC
     Dosage: 4 MG, QMO
     Route: 042
  2. TAMOXIFEN [Concomitant]

REACTIONS (2)
  - ACTINOMYCOSIS [None]
  - OSTEONECROSIS [None]
